FAERS Safety Report 7251375-X (Version None)
Quarter: 2011Q1

REPORT INFORMATION
  Report Type: 
  Country: None (occurrence: None)
  Receive Date: 20110128
  Receipt Date: 20110125
  Transmission Date: 20110831
  Serious: Yes (Other)
  Sender: FDA-Public Use
  Company Number: US-PFIZER INC-2011017842

PATIENT
  Sex: Male
  Weight: 97.506 kg

DRUGS (8)
  1. REMERON [Concomitant]
     Indication: SLEEP DISORDER
     Dosage: 50 MG, 1X/DAY
  2. AMLODIPINE BESYLATE AND BENAZEPRIL HCL [Concomitant]
     Indication: BLOOD PRESSURE ABNORMAL
     Dosage: 5/10 MG
  3. KLONOPIN [Concomitant]
     Indication: ANXIETY
     Dosage: 2 MG, 3X/DAY
  4. ATENOLOL [Concomitant]
     Indication: TREMOR
     Dosage: 50 MG, 2X/DAY
  5. XANAX [Suspect]
     Indication: PANIC ATTACK
  6. XANAX [Suspect]
     Indication: ANXIETY
     Dosage: 2 MG, 2X/DAY
     Dates: end: 19900101
  7. CYMBALTA [Concomitant]
     Indication: MUSCLE INJURY
  8. CYMBALTA [Concomitant]
     Indication: JOINT INJURY
     Dosage: 60 MG, 1X/DAY

REACTIONS (2)
  - DRUG DEPENDENCE [None]
  - CONVULSION [None]
